FAERS Safety Report 16693853 (Version 1)
Quarter: 2019Q3

REPORT INFORMATION
  Report Type: Spontaneous
  Country: US (occurrence: US)
  Receive Date: 20190625
  Receipt Date: 20190625
  Transmission Date: 20191004
  Serious: Yes (Hospitalization)
  Sender: FDA-Public Use
  Company Number: None

PATIENT
  Age: 77 Year
  Sex: Male
  Weight: 99 kg

DRUGS (1)
  1. APIXABAN [Suspect]
     Active Substance: APIXABAN
     Route: 048
     Dates: start: 20180112, end: 20190426

REACTIONS (5)
  - Gastric ulcer [None]
  - Gastrointestinal haemorrhage [None]
  - Gastric haemorrhage [None]
  - Haemoglobin decreased [None]
  - Diverticulum [None]

NARRATIVE: CASE EVENT DATE: 20190426
